FAERS Safety Report 9885751 (Version 2)
Quarter: 2014Q1

REPORT INFORMATION
  Report Type: Report from Study
  Country: JP (occurrence: JP)
  Receive Date: 20140210
  Receipt Date: 20140303
  Transmission Date: 20141002
  Serious: Yes (Hospitalization)
  Sender: FDA-Public Use
  Company Number: JP-TEVA-461518USA

PATIENT
  Age: 43 Year
  Sex: Male
  Weight: 64.9 kg

DRUGS (31)
  1. NOBELZIN [Suspect]
     Indication: HEPATO-LENTICULAR DEGENERATION
     Dosage: 150 MILLIGRAM DAILY;
     Route: 048
     Dates: start: 20110726, end: 20130423
  2. NOBELZIN [Suspect]
     Dosage: 75 MILLIGRAM DAILY;
     Route: 048
     Dates: start: 20130424, end: 20130718
  3. ADEROXAL POWDER [Concomitant]
     Indication: PRODUCT USED FOR UNKNOWN INDICATION
     Dosage: 60 MILLIGRAM DAILY;
     Route: 048
     Dates: start: 20110725, end: 20110802
  4. METALCAPTASE [Concomitant]
     Indication: HEPATO-LENTICULAR DEGENERATION
     Dosage: 1200 MILLIGRAM DAILY;
     Route: 048
     Dates: start: 20100601, end: 20110727
  5. METALCAPTASE [Concomitant]
     Dosage: 900 MILLIGRAM DAILY;
     Route: 048
     Dates: start: 20110728, end: 20110729
  6. METALCAPTASE [Concomitant]
     Dosage: 600 MILLIGRAM DAILY;
     Route: 048
     Dates: start: 20110730, end: 20110731
  7. METALCAPTASE [Concomitant]
     Dosage: 300 MILLIGRAM DAILY;
     Route: 048
     Dates: start: 20110801, end: 20110802
  8. ARCRANE [Concomitant]
     Indication: PRODUCT USED FOR UNKNOWN INDICATION
     Dosage: 120 ML DAILY;
     Route: 048
     Dates: start: 20110726, end: 20110807
  9. ARCRANE [Concomitant]
     Dosage: 120 ML DAILY;
     Route: 048
     Dates: start: 20121231, end: 20130104
  10. ARCRANE [Concomitant]
     Dosage: 160 ML DAILY;
     Route: 048
     Dates: start: 20130416, end: 20130501
  11. MIYA-BM [Concomitant]
     Indication: PRODUCT USED FOR UNKNOWN INDICATION
     Dosage: 3 GRAM DAILY;
     Dates: start: 20121231, end: 20130104
  12. PRIMPERAN [Concomitant]
     Indication: PRODUCT USED FOR UNKNOWN INDICATION
     Dosage: 3 T
     Route: 048
     Dates: start: 20121231, end: 20130104
  13. MALFA [Concomitant]
     Indication: PRODUCT USED FOR UNKNOWN INDICATION
     Dosage: 45 ML DAILY;
     Route: 048
     Dates: start: 20110726, end: 20110730
  14. SPIRONOLACTONE TOWA [Concomitant]
     Indication: PRODUCT USED FOR UNKNOWN INDICATION
     Dosage: 75 MILLIGRAM DAILY;
     Route: 048
     Dates: start: 20120719, end: 20130718
  15. OMEPRAZOLE [Concomitant]
     Indication: PRODUCT USED FOR UNKNOWN INDICATION
     Dosage: 40 MILLIGRAM DAILY;
     Dates: start: 20130416
  16. OMEPRAZOLE [Concomitant]
     Dates: start: 20130423
  17. ADONA [Concomitant]
     Indication: PRODUCT USED FOR UNKNOWN INDICATION
     Dosage: 50 MILLIGRAM DAILY;
     Route: 041
     Dates: start: 20130416
  18. ADONA [Concomitant]
     Dosage: 50 MILLIGRAM DAILY;
     Route: 041
     Dates: start: 20130423
  19. TRANSAMIN [Concomitant]
     Indication: PRODUCT USED FOR UNKNOWN INDICATION
     Dosage: 250 MILLIGRAM DAILY;
     Route: 041
     Dates: start: 20130416
  20. TRANSAMIN [Concomitant]
     Dosage: 250 MILLIGRAM DAILY;
     Route: 041
     Dates: start: 20130423
  21. PENTAGIN [Concomitant]
     Indication: PRODUCT USED FOR UNKNOWN INDICATION
     Dosage: 15 MILLIGRAM DAILY;
     Dates: start: 20130416
  22. PENTAGIN [Concomitant]
     Dosage: 15 MILLIGRAM DAILY;
     Dates: start: 20130423
  23. ATROPINE [Concomitant]
     Indication: PRODUCT USED FOR UNKNOWN INDICATION
     Dosage: .5 MILLIGRAM DAILY;
     Dates: start: 20130416
  24. ATROPINE [Concomitant]
     Dosage: .5 MILLIGRAM DAILY;
     Dates: start: 20130423
  25. HAPTOGLOBIN (HUMAN HAPTOGLOBIN) [Concomitant]
     Indication: PRODUCT USED FOR UNKNOWN INDICATION
     Dosage: 2000 IU (INTERNATIONAL UNIT) DAILY;
     Route: 041
     Dates: start: 20130416
  26. HAPTOGLOBIN (HUMAN HAPTOGLOBIN) [Concomitant]
     Dosage: 2000 IU (INTERNATIONAL UNIT) DAILY;
     Route: 041
     Dates: start: 20130423
  27. CEFMETAZOLE NA [Concomitant]
     Indication: PRODUCT USED FOR UNKNOWN INDICATION
     Dosage: 2 GRAM DAILY;
     Dates: start: 20130424, end: 20130426
  28. AMINOVACT (AMINO ACID PREPARATIONS FOR HEPATIC CIRRHOSIS) [Concomitant]
     Indication: PRODUCT USED FOR UNKNOWN INDICATION
     Dosage: 14.22 GRAM DAILY;
     Route: 048
     Dates: start: 20091027, end: 20130718
  29. SPIRONOLACTONE [Concomitant]
     Indication: PRODUCT USED FOR UNKNOWN INDICATION
     Dosage: 75 MILLIGRAM DAILY;
     Route: 048
     Dates: start: 20100630, end: 20130718
  30. PARIET [Concomitant]
     Dosage: 10 MILLIGRAM DAILY;
     Route: 048
     Dates: start: 20100414, end: 20130718
  31. ORGARAN [Concomitant]
     Indication: PRODUCT USED FOR UNKNOWN INDICATION
     Dosage: 2500 IU (INTERNATIONAL UNIT) DAILY;
     Dates: start: 20130427, end: 20130510

REACTIONS (2)
  - Varices oesophageal [Recovering/Resolving]
  - Portal vein thrombosis [Recovering/Resolving]
